FAERS Safety Report 6681094-X (Version None)
Quarter: 2010Q2

REPORT INFORMATION
  Report Type: 
  Country: None (occurrence: None)
  Receive Date: 20100414
  Receipt Date: 20080516
  Transmission Date: 20101027
  Serious: No
  Sender: FDA-Public Use
  Company Number: US-ABBOTT-08P-163-0535028-00

PATIENT
  Sex: Female
  Weight: 79.8 kg

DRUGS (1)
  1. LEUPROLIDE ACETATE [Suspect]
     Indication: UTERINE LEIOMYOMA
     Route: 030
     Dates: start: 20080219

REACTIONS (1)
  - OVARIAN CYST [None]
